FAERS Safety Report 9292655 (Version 1)
Quarter: 2013Q2

REPORT INFORMATION
  Report Type: Spontaneous
  Country: US (occurrence: None)
  Receive Date: 20130515
  Receipt Date: 20130515
  Transmission Date: 20140414
  Serious: No
  Sender: FDA-Public Use
  Company Number: None

PATIENT
  Age: 75 None
  Sex: Female
  Weight: 81.65 kg

DRUGS (1)
  1. KETOCONAZOLE [Suspect]
     Dosage: APPLY 2 TO 3 TIMES A. W.?ABOUT 6 MONTHS

REACTIONS (2)
  - Rash [None]
  - Alopecia [None]
